FAERS Safety Report 21238697 (Version 1)
Quarter: 2022Q3

REPORT INFORMATION
  Report Type: Spontaneous
  Country: CN (occurrence: CN)
  Receive Date: 20220822
  Receipt Date: 20220822
  Transmission Date: 20221026
  Serious: Yes (Hospitalization, Other)
  Sender: FDA-Public Use
  Company Number: CN-PFIZER INC-PV202200046157

PATIENT
  Age: 35 Year
  Sex: Female
  Weight: 50 kg

DRUGS (2)
  1. METHOTREXATE SODIUM [Suspect]
     Active Substance: METHOTREXATE SODIUM
     Indication: Ectopic pregnancy termination
     Dosage: 20 MG, 1X/DAY
     Route: 030
     Dates: start: 20220801, end: 20220805
  2. METHOTREXATE SODIUM [Suspect]
     Active Substance: METHOTREXATE SODIUM
     Dosage: 20 MG, 1X/DAY
     Route: 030
     Dates: start: 20220801, end: 20220805

REACTIONS (3)
  - Liver injury [Recovering/Resolving]
  - Mouth ulceration [Recovering/Resolving]
  - White blood cell count decreased [Recovering/Resolving]

NARRATIVE: CASE EVENT DATE: 20220803
